FAERS Safety Report 16971554 (Version 2)
Quarter: 2019Q4

REPORT INFORMATION
  Report Type: Report from Study
  Country: JP (occurrence: JP)
  Receive Date: 20191029
  Receipt Date: 20191029
  Transmission Date: 20200122
  Serious: Yes (Other)
  Sender: FDA-Public Use
  Company Number: JP-JNJFOC-20191029953

PATIENT

DRUGS (3)
  1. IMBRUVICA [Suspect]
     Active Substance: IBRUTINIB
     Indication: LYMPHOCYTIC LYMPHOMA
  2. IMBRUVICA [Suspect]
     Active Substance: IBRUTINIB
     Indication: CHRONIC LYMPHOCYTIC LEUKAEMIA
     Dosage: UNKNOWN
     Route: 048
  3. IMBRUVICA [Suspect]
     Active Substance: IBRUTINIB
     Indication: MANTLE CELL LYMPHOMA

REACTIONS (9)
  - Cardiac failure [Unknown]
  - Dementia [Unknown]
  - Leukopenia [Unknown]
  - Infection [Unknown]
  - Tumour lysis syndrome [Unknown]
  - Haemorrhagic diathesis [Unknown]
  - Disease progression [Unknown]
  - Rash [Unknown]
  - Lymphocytosis [Unknown]
